FAERS Safety Report 10589135 (Version 1)
Quarter: 2014Q4

REPORT INFORMATION
  Report Type: Spontaneous
  Country: SN (occurrence: SN)
  Receive Date: 20141118
  Receipt Date: 20141118
  Transmission Date: 20150529
  Serious: Yes (Other)
  Sender: FDA-Public Use
  Company Number: PHHY2014SN146045

PATIENT
  Age: 30 Year
  Sex: Female
  Weight: 73 kg

DRUGS (1)
  1. BINOCLAR [Suspect]
     Active Substance: CLARITHROMYCIN
     Indication: PNEUMONIA
     Dosage: 500 MG, BID
     Route: 002
     Dates: start: 20140720, end: 20140722

REACTIONS (4)
  - Drooling [Unknown]
  - Malaise [Recovered/Resolved]
  - Abdominal discomfort [Recovered/Resolved]
  - Salivary hypersecretion [Recovered/Resolved]

NARRATIVE: CASE EVENT DATE: 20140720
